FAERS Safety Report 7288815-6 (Version None)
Quarter: 2011Q1

REPORT INFORMATION
  Report Type: 
  Country: None (occurrence: None)
  Receive Date: 20110211
  Receipt Date: 20110128
  Transmission Date: 20110831
  Serious: Yes (Other)
  Sender: FDA-Public Use
  Company Number: JP-MERCK-1102USA00843

PATIENT
  Age: 64 Year
  Sex: Male

DRUGS (1)
  1. JANUVIA [Suspect]
     Indication: DIABETES MELLITUS
     Route: 048
     Dates: start: 20100901

REACTIONS (4)
  - EYE PAIN [None]
  - DIZZINESS [None]
  - DIPLOPIA [None]
  - IIIRD NERVE PARALYSIS [None]
